FAERS Safety Report 14478790 (Version 4)
Quarter: 2019Q3

REPORT INFORMATION
  Report Type: Spontaneous
  Country: CZ (occurrence: CZ)
  Receive Date: 20180202
  Receipt Date: 20190920
  Transmission Date: 20191004
  Serious: Yes (Death, Other)
  Sender: FDA-Public Use
  Company Number: CZ-ACCORD-063104

PATIENT
  Age: 61 Year
  Sex: Female

DRUGS (6)
  1. BEVACIZUMAB. [Suspect]
     Active Substance: BEVACIZUMAB
     Indication: COLORECTAL CANCER
     Dates: start: 20140623
  2. OXALIPLATIN. [Suspect]
     Active Substance: OXALIPLATIN
     Indication: COLORECTAL CANCER
     Dosage: FOLFOX ALSO RECEIVED FROM JUN-2014 TO AUG-2014
     Dates: start: 201211
  3. FOLINIC ACID [Suspect]
     Active Substance: LEUCOVORIN
     Indication: COLORECTAL CANCER
     Dosage: FOLFOX?FOLFIRI
     Dates: start: 201211
  4. IRINOTECAN [Suspect]
     Active Substance: IRINOTECAN
     Indication: COLORECTAL CANCER
     Dosage: FOLFIRI (ALSO RECEIVED ON 25-JUN-2016, TO APR-2017,  ON SEP-2014)
     Dates: start: 20140908
  5. FLUOROURACIL. [Suspect]
     Active Substance: FLUOROURACIL
     Indication: COLORECTAL CANCER
     Dosage: FOLFOX?FOLFIRI
     Dates: start: 201211
  6. AFLIBERCEPT [Concomitant]
     Active Substance: AFLIBERCEPT
     Dates: start: 20140908, end: 20160111

REACTIONS (6)
  - Disease progression [Unknown]
  - Fatigue [Recovered/Resolved]
  - Hypertension [Recovered/Resolved]
  - Thrombocytopenia [Recovered/Resolved]
  - Diarrhoea [Recovered/Resolved]
  - Drug ineffective [Unknown]

NARRATIVE: CASE EVENT DATE: 2014
